FAERS Safety Report 24258631 (Version 2)
Quarter: 2024Q3

REPORT INFORMATION
  Report Type: Spontaneous
  Country: CA (occurrence: CA)
  Receive Date: 20240828
  Receipt Date: 20240906
  Transmission Date: 20241017
  Serious: Yes (Other)
  Sender: PFIZER
  Company Number: CA-PFIZER INC-202300213946

PATIENT
  Age: 38 Year
  Sex: Female
  Weight: 96 kg

DRUGS (6)
  1. RUXIENCE [Suspect]
     Active Substance: RITUXIMAB-PVVR
     Indication: Scleroderma
     Dosage: 500 MG, EVERY 6 MONTH, FIRST APPOINTMENT
     Route: 042
     Dates: start: 20230810, end: 20230810
  2. RUXIENCE [Suspect]
     Active Substance: RITUXIMAB-PVVR
     Indication: Interstitial lung disease
     Dosage: 500 MG, EVERY 6 MONTH, FIRST APPOINTMENT( 500 MG, DAY 1 RETREATMENT)
     Route: 042
     Dates: start: 20240212
  3. RUXIENCE [Suspect]
     Active Substance: RITUXIMAB-PVVR
     Dosage: (ONE DOSE OF RETREATMENT (500 MG, EVERY 6 MONTH))
     Route: 042
     Dates: start: 20240823
  4. ACETAMINOPHEN [Concomitant]
     Active Substance: ACETAMINOPHEN
     Indication: Premedication
     Dosage: 650 MG
     Dates: start: 20240823, end: 20240823
  5. DIPHENHYDRAMINE [Concomitant]
     Active Substance: DIPHENHYDRAMINE
     Indication: Premedication
     Dosage: 50 MG
     Dates: start: 20240823, end: 20240823
  6. SOLU-MEDROL [Concomitant]
     Active Substance: METHYLPREDNISOLONE SODIUM SUCCINATE
     Indication: Premedication
     Dosage: 100 MG
     Dates: start: 20240823, end: 20240823

REACTIONS (17)
  - Choking [Recovered/Resolved]
  - Dyspnoea [Recovered/Resolved]
  - Erythema [Recovered/Resolved]
  - Pruritus [Recovered/Resolved]
  - Abdominal pain [Recovered/Resolved]
  - Burning sensation [Recovered/Resolved]
  - Aphasia [Recovered/Resolved]
  - Hypopnoea [Recovered/Resolved]
  - Obstructive airways disorder [Recovered/Resolved]
  - Somnolence [Recovered/Resolved]
  - Chest discomfort [Recovered/Resolved]
  - Ocular hyperaemia [Recovered/Resolved]
  - Lacrimation increased [Recovered/Resolved]
  - Feeling hot [Recovered/Resolved]
  - Off label use [Unknown]
  - Off label use [Unknown]
  - Intentional product use issue [Unknown]

NARRATIVE: CASE EVENT DATE: 20230810
